FAERS Safety Report 10547885 (Version 1)
Quarter: 2014Q4

REPORT INFORMATION
  Report Type: Spontaneous
  Country: US (occurrence: None)
  Receive Date: 20141027
  Receipt Date: 20141027
  Transmission Date: 20150529
  Serious: Yes (Death, Life-Threatening, Disabling, Other)
  Sender: FDA-Public Use
  Company Number: None

PATIENT
  Age: 74 Year
  Sex: Male
  Weight: 90.72 kg

DRUGS (1)
  1. XOFIGO [Suspect]
     Active Substance: RADIUM RA-223 DICHLORIDE
     Indication: PROSTATE CANCER
     Dosage: 6 ONCE PER MONTH
     Dates: start: 20140307, end: 20140815

REACTIONS (6)
  - Abasia [None]
  - Drug ineffective [None]
  - Nausea [None]
  - Fatigue [None]
  - Pain [None]
  - Asthenia [None]
